FAERS Safety Report 19666131 (Version 1)
Quarter: 2021Q3

REPORT INFORMATION
  Report Type: Spontaneous
  Country: US (occurrence: US)
  Receive Date: 20210806
  Receipt Date: 20210806
  Transmission Date: 20211014
  Serious: No
  Sender: FDA-Public Use
  Company Number: None

PATIENT
  Age: 70 Year
  Sex: Male
  Weight: 108 kg

DRUGS (4)
  1. SOLUMEDROL 12MG=2ML IV [Concomitant]
     Dates: start: 20210729
  2. GAMUNEX?C [Suspect]
     Active Substance: HUMAN IMMUNOGLOBULIN G
     Indication: CHRONIC INFLAMMATORY DEMYELINATING POLYRADICULONEUROPATHY
     Dosage: ?          OTHER FREQUENCY:EVERY 2 WEEKS;?
     Route: 041
     Dates: start: 20210727, end: 20210727
  3. TYLENOL 650MG [Concomitant]
     Dates: start: 20210729
  4. BENADRYL 50MG [Concomitant]
     Dates: start: 20210729

REACTIONS (1)
  - Urticaria [None]

NARRATIVE: CASE EVENT DATE: 20210729
